FAERS Safety Report 8224678-X (Version None)
Quarter: 2012Q1

REPORT INFORMATION
  Report Type: 
  Country: None (occurrence: None)
  Receive Date: 20120321
  Receipt Date: 20120315
  Transmission Date: 20120608
  Serious: Yes (Life-Threatening, Other)
  Sender: FDA-Public Use
  Company Number: IT-ABBOTT-12P-083-0908928-00

PATIENT
  Sex: Female

DRUGS (6)
  1. CALCIUM CARBONATE [Suspect]
     Indication: HYPOCALCAEMIA
     Dates: start: 20110701, end: 20120201
  2. KEPPRA [Concomitant]
     Indication: PRODUCT USED FOR UNKNOWN INDICATION
     Route: 048
     Dates: start: 20110601
  3. CALCITRIOL [Suspect]
     Dates: end: 20120201
  4. ASPIRIN [Concomitant]
     Indication: PRODUCT USED FOR UNKNOWN INDICATION
  5. CALCITRIOL [Suspect]
     Indication: HYPOCALCAEMIA
     Dates: start: 20110301, end: 20110601
  6. CALCIUM CARBONATE [Suspect]
     Dates: end: 20110601

REACTIONS (4)
  - HYPERCALCAEMIA [None]
  - CONVULSION [None]
  - COMA [None]
  - FEMUR FRACTURE [None]
